FAERS Safety Report 7267339-6 (Version None)
Quarter: 2011Q1

REPORT INFORMATION
  Report Type: 
  Country: None (occurrence: None)
  Receive Date: 20110201
  Receipt Date: 20100401
  Transmission Date: 20110831
  Serious: No
  Sender: FDA-Public Use
  Company Number: A0850904A

PATIENT
  Age: 50 Year
  Sex: Female
  Weight: 87.3 kg

DRUGS (3)
  1. FERROUS SULFATE TAB [Concomitant]
     Dosage: 325MG UNKNOWN
     Route: 048
     Dates: start: 20091008, end: 20091230
  2. ARIXTRA [Suspect]
     Indication: PROPHYLAXIS
     Dosage: 2.5MG PER DAY
     Route: 058
     Dates: start: 20090101, end: 20090101
  3. PERCOCET [Concomitant]
     Indication: PAIN PROPHYLAXIS
     Route: 048
     Dates: start: 20091008, end: 20091025

REACTIONS (2)
  - INJECTION SITE COLDNESS [None]
  - FEELING COLD [None]
